FAERS Safety Report 25252361 (Version 1)
Quarter: 2025Q2

REPORT INFORMATION
  Report Type: Spontaneous
  Country: CN (occurrence: CN)
  Receive Date: 20250429
  Receipt Date: 20250429
  Transmission Date: 20250717
  Serious: Yes (Life-Threatening)
  Sender: ELI LILLY AND COMPANY
  Company Number: CN-Merck Healthcare KGaA-2025020645

PATIENT
  Age: 53 Year
  Sex: Male
  Weight: 48 kg

DRUGS (4)
  1. ERBITUX [Suspect]
     Active Substance: CETUXIMAB
     Indication: Lip and/or oral cavity cancer
     Route: 041
     Dates: start: 20250410, end: 20250410
  2. DOCETAXEL [Suspect]
     Active Substance: DOCETAXEL
     Indication: Lip and/or oral cavity cancer
     Dosage: 100 MG, DAILY
     Route: 041
     Dates: start: 20250410, end: 20250410
  3. TORIPALIMAB [Suspect]
     Active Substance: TORIPALIMAB
     Indication: Lip and/or oral cavity cancer
     Dosage: 240 MG, DAILY
     Route: 041
     Dates: start: 20250410, end: 20250410
  4. CARBOPLATIN [Suspect]
     Active Substance: CARBOPLATIN
     Indication: Lip and/or oral cavity cancer
     Dosage: 300 MG, DAILY
     Route: 041
     Dates: start: 20250410, end: 20250410

REACTIONS (2)
  - Myelosuppression [Recovering/Resolving]
  - Pyrexia [Recovering/Resolving]

NARRATIVE: CASE EVENT DATE: 20250415
